FAERS Safety Report 18242242 (Version 1)
Quarter: 2020Q3

REPORT INFORMATION
  Report Type: Spontaneous
  Country: US (occurrence: US)
  Receive Date: 20200908
  Receipt Date: 20200908
  Transmission Date: 20201103
  Serious: No
  Sender: FDA-Public Use
  Company Number: None

PATIENT
  Sex: Female

DRUGS (19)
  1. CIPROFLOXACN [Concomitant]
     Active Substance: CIPROFLOXACIN
  2. HYDROXYCHLOR [Concomitant]
     Active Substance: HYDROXYCHLOROQUINE
  3. MYCOPHENOLAT [Concomitant]
     Active Substance: MYCOPHENOLATE MOFETIL
  4. TRAMADOL HCL, [Concomitant]
  5. VALACYCLO\/IR [Concomitant]
  6. CYCLOBENZAPR [Concomitant]
     Active Substance: CYCLOBENZAPRINE
  7. LAMOTRIGINE. [Concomitant]
     Active Substance: LAMOTRIGINE
  8. ARIPIPRAZOLE. [Concomitant]
     Active Substance: ARIPIPRAZOLE
  9. DOXYCYCL HYC [Concomitant]
  10. OMEPRAZOLE. [Concomitant]
     Active Substance: OMEPRAZOLE
  11. BENLYSTA [Suspect]
     Active Substance: BELIMUMAB
     Indication: SYSTEMIC LUPUS ERYTHEMATOSUS
     Dosage: ?          OTHER DOSE:1 SYR;?
     Route: 058
     Dates: start: 20200509
  12. BENZTROPINE. [Concomitant]
     Active Substance: BENZTROPINE
  13. CELECOXIB. [Concomitant]
     Active Substance: CELECOXIB
  14. LORAZEPAM. [Concomitant]
     Active Substance: LORAZEPAM
  15. LEVOFLOXACIN. [Concomitant]
     Active Substance: LEVOFLOXACIN
  16. METOPROL TAR [Concomitant]
  17. OSELTAMIVIR [Concomitant]
     Active Substance: OSELTAMIVIR
  18. PREDNISONE. [Concomitant]
     Active Substance: PREDNISONE
  19. METRONIDAZOL [Concomitant]
     Active Substance: METRONIDAZOLE

REACTIONS (4)
  - Nausea [None]
  - Diarrhoea [None]
  - Thrombosis [None]
  - Malaise [None]
